FAERS Safety Report 23799286 (Version 1)
Quarter: 2024Q2

REPORT INFORMATION
  Report Type: Spontaneous
  Country: US (occurrence: None)
  Receive Date: 20240426
  Receipt Date: 20240426
  Transmission Date: 20240715
  Serious: Yes (Life-Threatening, Hospitalization)
  Sender: FDA-Public Use
  Company Number: None

PATIENT
  Age: 70 Year
  Sex: Male
  Weight: 57.61 kg

DRUGS (1)
  1. REMICADE [Suspect]
     Active Substance: INFLIXIMAB
     Indication: Colitis ulcerative
     Dosage: OTHER FREQUENCY : LOADING DOSE;?
     Route: 041
     Dates: start: 20240422, end: 20240422

REACTIONS (7)
  - Dyspnoea [None]
  - Pruritus [None]
  - Oxygen saturation decreased [None]
  - Hyperhidrosis [None]
  - Unresponsive to stimuli [None]
  - Foaming at mouth [None]
  - Agonal respiration [None]

NARRATIVE: CASE EVENT DATE: 20240422
